FAERS Safety Report 9927860 (Version 2)
Quarter: 2014Q1

REPORT INFORMATION
  Report Type: Spontaneous
  Country: FR (occurrence: None)
  Receive Date: 20140221
  Receipt Date: 20140227
  Transmission Date: 20141002
  Serious: Yes (Hospitalization)
  Sender: FDA-Public Use
  Company Number: B0966076A

PATIENT
  Age: 81 Year
  Sex: Male

DRUGS (7)
  1. PAROXETINE HYDROCHLORIDE [Suspect]
     Indication: ANXIETY
     Route: 048
     Dates: start: 20130827
  2. WARFARIN SODIUM (WARFARIN SODIUM) [Suspect]
     Indication: COAGULOPATHY
     Route: 048
     Dates: end: 20130807
  3. FONDAPARINUX SODIUM [Concomitant]
  4. ZOLPIDEM [Concomitant]
  5. PERINDOPRIL [Concomitant]
  6. ALPRAZOLAM [Concomitant]
  7. RIVAROXABAN [Suspect]
     Indication: PRODUCT USED FOR UNKNOWN INDICATION
     Route: 048
     Dates: start: 20131001, end: 20131017

REACTIONS (2)
  - Melaena [None]
  - Anaemia [None]
